FAERS Safety Report 6265404-3 (Version None)
Quarter: 2009Q3

REPORT INFORMATION
  Report Type: 
  Country: None (occurrence: None)
  Receive Date: 20090713
  Receipt Date: 20090704
  Transmission Date: 20100115
  Serious: Yes (Other)
  Sender: FDA-Public Use
  Company Number: US-BAYER-200925103GPV

PATIENT
  Age: 56 Year
  Sex: Female

DRUGS (3)
  1. CAMPATH [Suspect]
     Indication: HYPEREOSINOPHILIC SYNDROME
     Dosage: TOTAL DAILY DOSE: 30 MG
     Route: 065
     Dates: start: 20061022
  2. CAMPATH [Suspect]
     Dosage: 30 TO 40 MG EVERY 3 WEEKS
     Route: 065
     Dates: start: 20070711
  3. IFN ALPHA [Concomitant]
     Indication: HYPEREOSINOPHILIC SYNDROME
     Dosage: 1 - 7 MU
     Route: 065

REACTIONS (2)
  - INFUSION RELATED REACTION [None]
  - LYMPHOPENIA [None]
